FAERS Safety Report 8033743-1 (Version None)
Quarter: 2012Q1

REPORT INFORMATION
  Report Type: 
  Country: None (occurrence: None)
  Receive Date: 20120110
  Receipt Date: 20120103
  Transmission Date: 20120608
  Serious: Yes (Other)
  Sender: FDA-Public Use
  Company Number: FR-GLAXOSMITHKLINE-B0774384A

PATIENT
  Age: 55 Year
  Sex: Male

DRUGS (2)
  1. CALCIPOTRIENE [Concomitant]
     Route: 065
  2. SORIATANE [Suspect]
     Indication: PSORIASIS
     Dosage: 25MG PER DAY
     Route: 048
     Dates: start: 20111213, end: 20120103

REACTIONS (1)
  - SKIN EXFOLIATION [None]
